FAERS Safety Report 6661665-7 (Version None)
Quarter: 2010Q1

REPORT INFORMATION
  Report Type: 
  Country: None (occurrence: None)
  Receive Date: 20100331
  Receipt Date: 20090402
  Transmission Date: 20100710
  Serious: Yes (Other)
  Sender: FDA-Public Use
  Company Number: US-BRISTOL-MYERS SQUIBB COMPANY-14571673

PATIENT
  Age: 7 Decade
  Sex: Female

DRUGS (2)
  1. ERBITUX [Suspect]
     Indication: HEAD AND NECK CANCER
  2. RADIATION THERAPY [Suspect]
     Indication: HEAD AND NECK CANCER

REACTIONS (2)
  - RASH [None]
  - STAPHYLOCOCCAL INFECTION [None]
